FAERS Safety Report 8952276 (Version 1)
Quarter: 2012Q4

REPORT INFORMATION
  Report Type: Report from Study
  Country: JP (occurrence: JP)
  Receive Date: 20121205
  Receipt Date: 20121205
  Transmission Date: 20130627
  Serious: Yes (Death)
  Sender: FDA-Public Use
  Company Number: JP-009507513-2012SP012842

PATIENT
  Age: 74 Year
  Sex: Female
  Weight: 73 kg

DRUGS (24)
  1. TEMOZOLOMIDE [Suspect]
     Indication: GLIOBLASTOMA MULTIFORME
     Dosage: 75 mg/m2, QD
     Route: 048
     Dates: start: 20070118, end: 20070301
  2. TEMOZOLOMIDE [Suspect]
     Dosage: 150 mg/m2, QD
     Route: 048
     Dates: start: 20070423, end: 20080427
  3. TEMOZOLOMIDE [Suspect]
     Dosage: 150 mg/m2, QD
     Route: 048
     Dates: start: 20070521, end: 20070525
  4. TEMOZOLOMIDE [Suspect]
     Dosage: 150 mg/m2, QD
     Route: 048
     Dates: start: 20070618, end: 20070622
  5. TEMOZOLOMIDE [Suspect]
     Dosage: 150 mg/m2, QD
     Route: 048
     Dates: start: 20070723, end: 20070727
  6. TEMOZOLOMIDE [Suspect]
     Dosage: 150 mg/m2, QD
     Route: 048
     Dates: start: 20070820, end: 20070824
  7. TEMOZOLOMIDE [Suspect]
     Dosage: 150 mg/m2, QD
     Route: 048
     Dates: start: 20070927, end: 20071001
  8. TEMOZOLOMIDE [Suspect]
     Dosage: 150 mg/m2, QD
     Route: 048
     Dates: start: 20071022, end: 20071026
  9. TEMOZOLOMIDE [Suspect]
     Dosage: 150 mg/m2, QD
     Route: 048
     Dates: start: 20071206, end: 20071210
  10. TEMOZOLOMIDE [Suspect]
     Dosage: 150 mg/m2, QD
     Route: 048
     Dates: start: 20080110, end: 20080114
  11. TEMOZOLOMIDE [Suspect]
     Dosage: 150 mg/m2, QD
     Route: 048
     Dates: start: 20080303, end: 20080307
  12. TEMOZOLOMIDE [Suspect]
     Dosage: 150 mg/m2, QD
     Route: 048
     Dates: start: 20080403, end: 20080407
  13. MYSLEE [Concomitant]
     Dosage: UNK
     Route: 048
  14. PURSENNID (SENNOSIDES) [Concomitant]
     Indication: PROPHYLAXIS
     Dosage: UNK
     Route: 048
     Dates: start: 20070111
  15. MAGNESIUM OXIDE [Concomitant]
     Indication: PROPHYLAXIS
     Dosage: UNK
     Route: 048
     Dates: start: 20070111
  16. MAGLAX (MAGNESIUM OXIDE) [Concomitant]
     Indication: PROPHYLAXIS
     Dosage: UNK
     Route: 048
     Dates: start: 20070127
  17. LAXOBERON [Concomitant]
     Indication: PROPHYLAXIS
     Dosage: UNK
     Route: 048
     Dates: start: 20070130
  18. DEPAKENE [Concomitant]
     Indication: PROPHYLAXIS
     Dosage: UNK
     Route: 048
     Dates: start: 20070313
  19. BAKTAR [Concomitant]
     Indication: ANTIFUNGAL PROPHYLAXIS
     Dosage: UNK
     Route: 048
     Dates: start: 20070118, end: 20070225
  20. EXCEGRAN [Concomitant]
     Indication: PROPHYLAXIS
     Dosage: UNK
     Route: 048
     Dates: end: 20070215
  21. MUCOSTA [Concomitant]
     Dosage: UNK
     Route: 048
     Dates: end: 20070215
  22. DIFLUCAN [Concomitant]
     Indication: PROPHYLAXIS
     Dosage: UNK
     Route: 048
     Dates: start: 20070214, end: 20070306
  23. FUNGIZONE [Concomitant]
     Indication: PROPHYLAXIS
     Dosage: UNK
     Route: 048
     Dates: start: 20070214, end: 20070306
  24. PHENOBAL [Concomitant]
     Indication: PROPHYLAXIS
     Dosage: UNK
     Route: 048
     Dates: start: 20070214, end: 20070315

REACTIONS (16)
  - Disease progression [Fatal]
  - Herpes zoster [Recovered/Resolved]
  - Blood sodium increased [Recovering/Resolving]
  - Hyperchloraemia [Recovered/Resolved]
  - Anaemia [Recovered/Resolved]
  - White blood cell count decreased [Not Recovered/Not Resolved]
  - Lymphocyte count decreased [Not Recovered/Not Resolved]
  - Monocyte count increased [Not Recovered/Not Resolved]
  - Eosinophil count increased [Recovered/Resolved]
  - Gamma-glutamyltransferase increased [Recovered/Resolved]
  - Blood alkaline phosphatase increased [Recovered/Resolved]
  - Protein total decreased [Not Recovered/Not Resolved]
  - Blood albumin decreased [Not Recovered/Not Resolved]
  - Drug eruption [Recovered/Resolved]
  - Anaemia [Recovered/Resolved]
  - Platelet count decreased [Not Recovered/Not Resolved]
